FAERS Safety Report 9344143 (Version 2)
Quarter: 2013Q3

REPORT INFORMATION
  Report Type: Report from Study
  Country: DE (occurrence: DE)
  Receive Date: 20130612
  Receipt Date: 20130703
  Transmission Date: 20140515
  Serious: Yes (Hospitalization)
  Sender: FDA-Public Use
  Company Number: DE-PFIZER INC-2013162022

PATIENT
  Age: 75 Year
  Sex: Male
  Weight: 61 kg

DRUGS (8)
  1. INLYTA [Suspect]
     Dosage: 5 MG, 1X/DAY
     Route: 048
     Dates: start: 20130214
  2. TORASEMIDE [Concomitant]
     Dosage: 10 UNK, 1X/DAY
  3. METOPROLOL [Concomitant]
     Dosage: 95 UNK, 1X/DAY
  4. NIFEDIPINE [Concomitant]
     Dosage: 20 UNK, 1X/DAY
  5. DEKRISTOL [Concomitant]
     Dosage: 20000 UNK, UNK
  6. SALOFALK ^AVENTIS^ [Concomitant]
     Dosage: 1000 UNK, 4X/DAY
  7. ACTRAPID [Concomitant]
     Dosage: UNK, AS NEEDED
  8. PANTOZOL [Concomitant]
     Dosage: 40 UNK, 1X/DAY

REACTIONS (4)
  - General physical health deterioration [Recovering/Resolving]
  - Fatigue [Recovered/Resolved]
  - Asthenia [Recovered/Resolved]
  - Pain [Not Recovered/Not Resolved]
